FAERS Safety Report 5084135-9 (Version None)
Quarter: 2006Q3

REPORT INFORMATION
  Report Type: 
  Country: None (occurrence: None)
  Receive Date: 20060816
  Receipt Date: 20060808
  Transmission Date: 20061208
  Serious: Yes (Other)
  Sender: FDA-Public Use
  Company Number: 2006096855

PATIENT
  Age: 16 Month
  Sex: Female

DRUGS (1)
  1. MECLIZINE [Suspect]
     Indication: ACCIDENTAL OVERDOSE
     Dosage: 4 TABLETS ONCE, ORAL
     Route: 048
     Dates: start: 20060808, end: 20060808

REACTIONS (4)
  - ACCIDENTAL DRUG INTAKE BY CHILD [None]
  - DIZZINESS [None]
  - FATIGUE [None]
  - GAIT DISTURBANCE [None]
